FAERS Safety Report 9850500 (Version 2)
Quarter: 2014Q1

REPORT INFORMATION
  Report Type: Report from Study
  Country: US (occurrence: US)
  Receive Date: 20140128
  Receipt Date: 20140325
  Transmission Date: 20141002
  Serious: Yes (Death, Other)
  Sender: FDA-Public Use
  Company Number: US-GILEAD-2014-0092951

PATIENT
  Sex: Female

DRUGS (23)
  1. AZTREONAM LYSINE [Suspect]
     Indication: CYSTIC FIBROSIS LUNG
     Dosage: 75 MG, TID
     Route: 055
     Dates: start: 20100429, end: 20131227
  2. ZITHROMAX [Concomitant]
     Dosage: 500 MG, TID
     Route: 048
  3. VITAMIN D3 [Concomitant]
     Dosage: 1 DF, BID
     Route: 048
  4. CYPROHEPTADINE [Concomitant]
     Dosage: 4 MG, BID
     Route: 048
  5. PULMOZYME [Concomitant]
     Dosage: 2.5 ML, BID
     Route: 055
  6. FERROUS SULFATE [Concomitant]
     Route: 048
  7. VERAMYST [Concomitant]
     Dosage: 1 SPRAY IN EACH NOSTRIL (DF), BID
     Route: 045
  8. ADVAIR DISKUS [Concomitant]
     Dosage: 1 PUFF (DF), BID
     Route: 048
  9. HEPARIN SODIUM PORCINE [Concomitant]
     Dosage: 5 ML, PRN
     Route: 042
  10. NORCO [Concomitant]
     Indication: PAIN
     Dosage: 1 TABLET (DF), Q4-6 HRS PRN
     Route: 048
  11. MOTRIN [Concomitant]
     Dosage: 600 MG, Q6-8 HRS PRN
     Route: 048
  12. XOPENEX HFA [Concomitant]
     Dosage: 2 PUFFS (DF), BID
     Route: 055
  13. LIDOCAINE W/PRILOCAINE [Concomitant]
     Route: 061
  14. METOPROLOL TARTRATE [Concomitant]
     Dosage: 12.5 MG, BID
     Route: 048
  15. VITAMIN A                          /00056001/ [Concomitant]
     Dosage: 1 GTT, QD
     Route: 048
  16. AQUADEKS                           /07679501/ [Concomitant]
     Dosage: 1 CAPSULE (DF), BID
     Route: 048
  17. PRILOSEC                           /00661201/ [Concomitant]
     Dosage: 20 MG, QD
     Route: 048
  18. ZOFRAN                             /00955302/ [Concomitant]
     Indication: NAUSEA
     Dosage: 8 MG, Q8-HRS PRM
     Route: 048
  19. PANCREAZE                          /00150201/ [Concomitant]
     Dosage: 3 CAPSULES (DF), WITH MEALS
     Route: 048
  20. PANCREAZE                          /00150201/ [Concomitant]
     Dosage: 2 CAPSULES (DF), WITH SNACKS
     Route: 048
  21. ZANTAC [Concomitant]
     Dosage: 150 MG, BID
     Route: 048
  22. SODIUM CHLORIDE [Concomitant]
     Dosage: 4 ML, BID
     Route: 055
  23. TRIAMCINOLONE [Concomitant]
     Dosage: APPLY TO AFFECTED AREA, BID
     Route: 061

REACTIONS (6)
  - Respiratory failure [Fatal]
  - Burkholderia cepacia complex infection [Fatal]
  - Enterovirus infection [Fatal]
  - Rhinovirus infection [Fatal]
  - Pneumonia bacterial [Fatal]
  - Respiratory syncytial virus infection [Fatal]
